FAERS Safety Report 19660108 (Version 1)
Quarter: 2021Q3

REPORT INFORMATION
  Report Type: Spontaneous
  Country: US (occurrence: US)
  Receive Date: 20210804
  Receipt Date: 20210804
  Transmission Date: 20211014
  Serious: No
  Sender: FDA-Public Use
  Company Number: None

PATIENT
  Age: 85 Year
  Sex: Male
  Weight: 87.75 kg

DRUGS (21)
  1. TURMERIC 400MG [Concomitant]
  2. ERLEADA [Suspect]
     Active Substance: APALUTAMIDE
     Indication: PROSTATE CANCER
     Route: 048
     Dates: start: 20210723
  3. HYDRALAZINE [Concomitant]
     Active Substance: HYDRALAZINE HYDROCHLORIDE
  4. METOPROLOL SUCCINATE ER 50MG [Concomitant]
  5. VITAMIN D 1000IU [Concomitant]
  6. VITAMIN B12 500MCG [Concomitant]
  7. HYDROCHLOROTHIAZIDE 25MG [Concomitant]
     Active Substance: HYDROCHLOROTHIAZIDE
  8. VITAMIN B COMPLEX [Concomitant]
     Active Substance: CYANOCOBALAMIN\DEXPANTHENOL\NIACINAMIDE\PYRIDOXINE HYDROCHLORIDE\RIBOFLAVIN 5^-PHOSPHATE SODIUM\THIAMINE HYDROCHLORIDE\VITAMIN B COMPLEX
  9. TEMAZEPAM 30MG [Concomitant]
     Active Substance: TEMAZEPAM
  10. FLOMAX 0.4MG [Concomitant]
  11. PROCHLORPERAZINE 10MG [Concomitant]
  12. VITAMIN C [Concomitant]
     Active Substance: ASCORBIC ACID
  13. CALCIUM + D 600MG?200UNIT [Concomitant]
  14. FLUOXETINE [Concomitant]
     Active Substance: FLUOXETINE HYDROCHLORIDE
  15. ONDANSETRON 8MG [Concomitant]
     Active Substance: ONDANSETRON
  16. LISINOPRIL. [Concomitant]
     Active Substance: LISINOPRIL
  17. LEVOTHYROXINE 25MCG [Concomitant]
     Active Substance: LEVOTHYROXINE
  18. TOPROL XL 12.5MG [Concomitant]
  19. CLONIDINE 0.1MG [Concomitant]
     Active Substance: CLONIDINE
  20. AMLODIPINE [Concomitant]
     Active Substance: AMLODIPINE BESYLATE
  21. NORCO 5?325MG [Concomitant]

REACTIONS (4)
  - Headache [None]
  - Balance disorder [None]
  - Asthenia [None]
  - Coordination abnormal [None]

NARRATIVE: CASE EVENT DATE: 20210804
